FAERS Safety Report 4708134-9 (Version None)
Quarter: 2005Q3

REPORT INFORMATION
  Report Type: 
  Country: None (occurrence: None)
  Receive Date: 20050705
  Receipt Date: 20050705
  Transmission Date: 20060218
  Serious: Yes (Hospitalization)
  Sender: FDA-Public Use
  Company Number: None

PATIENT
  Age: 48 Year
  Sex: Male

DRUGS (5)
  1. CLOZARIL [Suspect]
     Indication: MEDICATION ERROR
     Dosage: 600 MG ORAL
     Route: 048
     Dates: start: 20050422, end: 20050422
  2. HALDOL [Concomitant]
  3. ATIVAN [Concomitant]
  4. COGENTIN [Concomitant]
  5. ARTANE [Concomitant]

REACTIONS (8)
  - BLOOD PRESSURE INCREASED [None]
  - CIRCULATORY COLLAPSE [None]
  - CONVULSION [None]
  - DRUG ADMINISTRATION ERROR [None]
  - DYSKINESIA [None]
  - HEART RATE INCREASED [None]
  - LOSS OF CONSCIOUSNESS [None]
  - MEDICATION ERROR [None]
